FAERS Safety Report 4400754-4 (Version None)
Quarter: 2004Q3

REPORT INFORMATION
  Report Type: 
  Country: None (occurrence: None)
  Receive Date: 20040714
  Receipt Date: 20040630
  Transmission Date: 20050211
  Serious: Yes (Hospitalization)
  Sender: FDA-Public Use
  Company Number: CERZ-10587

PATIENT
  Age: 51 Year
  Sex: Female
  Weight: 79.3795 kg

DRUGS (1)
  1. CEREZYME [Suspect]
     Indication: GAUCHER'S DISEASE
     Dosage: 4600 UNITS Q2WKS IV
     Route: 042
     Dates: start: 19970409

REACTIONS (5)
  - DISLOCATION OF JOINT PROSTHESIS [None]
  - FAILURE OF IMPLANT [None]
  - HIP ARTHROPLASTY [None]
  - HIP FRACTURE [None]
  - SURGICAL PROCEDURE REPEATED [None]
